FAERS Safety Report 23055226 (Version 1)
Quarter: 2023Q4

REPORT INFORMATION
  Report Type: Spontaneous
  Country: US (occurrence: None)
  Receive Date: 20231011
  Receipt Date: 20231011
  Transmission Date: 20240109
  Serious: Yes (Hospitalization, Disabling)
  Sender: FDA-Public Use
  Company Number: None

PATIENT
  Age: 24 Year
  Sex: Female
  Weight: 103.5 kg

DRUGS (5)
  1. WEGOVY [Suspect]
     Active Substance: SEMAGLUTIDE
  2. LEXAPRO [Concomitant]
     Active Substance: ESCITALOPRAM OXALATE
  3. HYDROXYZINE [Concomitant]
     Active Substance: HYDROXYZINE HYDROCHLORIDE
  4. Certirizine [Concomitant]
  5. VITAMINS [Concomitant]
     Active Substance: VITAMINS

REACTIONS (6)
  - Anxiety [None]
  - Panic attack [None]
  - Dyspepsia [None]
  - Heart rate increased [None]
  - Fear [None]
  - Loss of personal independence in daily activities [None]

NARRATIVE: CASE EVENT DATE: 20230810
